FAERS Safety Report 19614480 (Version 1)
Quarter: 2021Q3

REPORT INFORMATION
  Report Type: Spontaneous
  Country: IT (occurrence: IT)
  Receive Date: 20210727
  Receipt Date: 20210727
  Transmission Date: 20211014
  Serious: Yes (Hospitalization)
  Sender: FDA-Public Use
  Company Number: IT-MYLANLABS-2021M1046172

PATIENT
  Age: 65 Year
  Sex: Male

DRUGS (4)
  1. DEXAMETHASONE. [Suspect]
     Active Substance: DEXAMETHASONE
     Indication: KERATITIS
     Dosage: EYE OINTMENT
     Route: 061
  2. AMOXICILLIN/CLAVULANIC ACID [Suspect]
     Active Substance: AMOXICILLIN\CLAVULANIC ACID
     Indication: KERATITIS
     Dosage: 1 DOSAGE FORM, TID, THREE TIMES A DAY
     Route: 048
  3. TOBRAMYCIN. [Suspect]
     Active Substance: TOBRAMYCIN
     Indication: KERATITIS
     Dosage: EYE OINTMENT
     Route: 061
  4. OFLOXACIN. [Suspect]
     Active Substance: OFLOXACIN
     Indication: KERATITIS
     Dosage: UNK UNK, QID, DROPS
     Route: 061

REACTIONS (2)
  - Keratitis fungal [Recovering/Resolving]
  - Ulcerative keratitis [Recovering/Resolving]
